APPROVED DRUG PRODUCT: OZURDEX
Active Ingredient: DEXAMETHASONE
Strength: 0.7MG
Dosage Form/Route: IMPLANT;INTRAVITREAL
Application: N022315 | Product #001
Applicant: ABBVIE INC
Approved: Jun 17, 2009 | RLD: Yes | RS: Yes | Type: RX